FAERS Safety Report 8060037-0 (Version None)
Quarter: 2012Q1

REPORT INFORMATION
  Report Type: 
  Country: None (occurrence: None)
  Receive Date: 20120120
  Receipt Date: 20120118
  Transmission Date: 20120608
  Serious: No
  Sender: FDA-Public Use
  Company Number: US-BAYER-2012-006502

PATIENT
  Age: 69 Year
  Sex: Male
  Weight: 92.517 kg

DRUGS (6)
  1. ULTRAVIST 150 [Suspect]
     Indication: PROSTATE CANCER
  2. FINASTERIDE [Concomitant]
  3. CRESTOR [Concomitant]
  4. ULTRAVIST 150 [Suspect]
     Indication: COMPUTERISED TOMOGRAM ABDOMEN
     Dosage: UNK
     Route: 042
     Dates: start: 20120118, end: 20120118
  5. BICALUTAMIDE [Concomitant]
  6. LUPRON [Concomitant]

REACTIONS (4)
  - URTICARIA [None]
  - DYSGEUSIA [None]
  - RETCHING [None]
  - PRURITUS [None]
